FAERS Safety Report 14595266 (Version 1)
Quarter: 2018Q1

REPORT INFORMATION
  Report Type: Spontaneous
  Country: US (occurrence: US)
  Receive Date: 20180302
  Receipt Date: 20180302
  Transmission Date: 20180509
  Serious: No
  Sender: FDA-Public Use
  Company Number: US-AKORN PHARMACEUTICALS-2017AKN01384

PATIENT
  Sex: Male
  Weight: 61.22 kg

DRUGS (2)
  1. MOTRIN [Concomitant]
     Active Substance: IBUPROFEN
     Dosage: UNK, AS NEEDED
  2. MYORISAN [Suspect]
     Active Substance: ISOTRETINOIN
     Indication: ACNE CYSTIC
     Dosage: 40 MG, 2X/DAY (AS PRESCRIBED; PATIENT MAY HAVE BEEN TAKING 80 MG 1X/DAY)
     Dates: start: 20171004, end: 20171030

REACTIONS (2)
  - Lip dry [Recovered/Resolved]
  - Dry skin [Recovered/Resolved]

NARRATIVE: CASE EVENT DATE: 2017
